FAERS Safety Report 9877047 (Version 2)
Quarter: 2014Q1

REPORT INFORMATION
  Report Type: Spontaneous
  Country: US (occurrence: US)
  Receive Date: 20140206
  Receipt Date: 20140226
  Transmission Date: 20141002
  Serious: No
  Sender: FDA-Public Use
  Company Number: US-PFIZER INC-2014032484

PATIENT
  Age: 65 Year
  Sex: Female
  Weight: 70.3 kg

DRUGS (8)
  1. XALATAN [Suspect]
     Indication: GLAUCOMA
     Dosage: 2 GTT (1 DROP IN EACH EYE), 1X/DAY
     Route: 047
  2. XALATAN [Suspect]
     Indication: INTRAOCULAR PRESSURE TEST ABNORMAL
  3. XALATAN [Suspect]
     Indication: OPEN ANGLE GLAUCOMA
  4. XALATAN [Suspect]
     Indication: OPTIC NERVE CUPPING
  5. NORVASC [Concomitant]
     Indication: HYPERTENSION
     Dosage: UNK
  6. ATENOLOL [Concomitant]
     Indication: HYPERTENSION
     Dosage: UNK
  7. ENALAPRIL [Concomitant]
     Indication: HYPERTENSION
     Dosage: UNK
  8. PLAVIX [Concomitant]
     Dosage: UNK

REACTIONS (2)
  - Drug ineffective [Unknown]
  - Eye pain [Unknown]
